FAERS Safety Report 15263375 (Version 2)
Quarter: 2018Q4

REPORT INFORMATION
  Report Type: Spontaneous
  Country: CN (occurrence: CN)
  Receive Date: 20180810
  Receipt Date: 20180825
  Transmission Date: 20190204
  Serious: Yes (Death, Life-Threatening, Other)
  Sender: FDA-Public Use
  Company Number: CN-ACCORD-070521

PATIENT
  Age: 35 Year
  Sex: Male

DRUGS (2)
  1. DOCETAXEL. [Suspect]
     Active Substance: DOCETAXEL
     Indication: ANGIOSARCOMA METASTATIC
  2. GEMCITABINE/GEMCITABINE HYDROCHLORIDE [Suspect]
     Active Substance: GEMCITABINE\GEMCITABINE HYDROCHLORIDE
     Indication: ANGIOSARCOMA METASTATIC

REACTIONS (4)
  - Leukopenia [Recovering/Resolving]
  - Nausea [Recovering/Resolving]
  - Treatment failure [Unknown]
  - Thrombocytopenia [Recovering/Resolving]
